FAERS Safety Report 7284045-2 (Version None)
Quarter: 2011Q1

REPORT INFORMATION
  Report Type: 
  Country: None (occurrence: None)
  Receive Date: 20110209
  Receipt Date: 20110207
  Transmission Date: 20110831
  Serious: Yes (Hospitalization, Other)
  Sender: FDA-Public Use
  Company Number: US-ELI_LILLY_AND_COMPANY-US200910005432

PATIENT
  Sex: Female

DRUGS (13)
  1. METFORMIN [Concomitant]
     Dosage: 850 MG, UNK
     Dates: start: 20071221
  2. SULFAMETHOXAZOLE AND TRIMETHOPRIM [Concomitant]
     Dates: start: 20080107
  3. MUPIROCIN [Concomitant]
     Dates: start: 20080714
  4. LISINOPRIL /USA/ [Concomitant]
     Dosage: 20 MG, UNK
     Dates: start: 20071212
  5. BYETTA [Suspect]
     Dosage: 5 UG, UNKNOWN
     Route: 065
     Dates: start: 20071201
  6. METFORMIN [Concomitant]
     Dosage: 1000 MG, UNK
     Dates: start: 20080711
  7. GLIPIZIDE [Concomitant]
     Dosage: 5 MG, UNK
     Dates: start: 20080711
  8. OXYCODONE HCL AND ACETAMINOPHEN [Concomitant]
     Dates: start: 20080714
  9. BYETTA [Suspect]
     Dosage: 10 UG, UNKNOWN
     Dates: start: 20080126, end: 20080318
  10. GABAPENTIN [Concomitant]
     Dosage: 600 MG, UNK
  11. GLIMEPIRIDE [Concomitant]
     Dosage: 4 MG, UNK
     Dates: start: 20080206
  12. VALTREX [Concomitant]
     Dosage: 1 G, UNK
  13. CEPHALEXIN [Concomitant]
     Dosage: 500 MG, UNK
     Dates: start: 20080714

REACTIONS (1)
  - RENAL FAILURE [None]
